FAERS Safety Report 22672510 (Version 3)
Quarter: 2023Q4

REPORT INFORMATION
  Report Type: Report from Study
  Country: US (occurrence: US)
  Receive Date: 20230705
  Receipt Date: 20231026
  Transmission Date: 20240110
  Serious: No
  Sender: FDA-Public Use
  Company Number: US-IDORSIA-005895-2023-US

PATIENT
  Sex: Male

DRUGS (4)
  1. QUVIVIQ [Suspect]
     Active Substance: DARIDOREXANT
     Indication: Insomnia
     Dosage: 50 MG, QD
     Route: 048
  2. TRAZODONE HCL [Concomitant]
     Active Substance: TRAZODONE HYDROCHLORIDE
     Indication: Depression
     Dosage: 300 MG AT NIGHT
  3. BACLOFEN [Concomitant]
     Active Substance: BACLOFEN
     Indication: Muscle relaxant therapy
     Dosage: UNK, TID
  4. TRAMADOL [Concomitant]
     Active Substance: TRAMADOL\TRAMADOL HYDROCHLORIDE
     Dosage: 2-3 TIMES A DAY

REACTIONS (7)
  - Disturbance in attention [Recovered/Resolved]
  - Impaired driving ability [Recovered/Resolved]
  - Diabetes mellitus [Not Recovered/Not Resolved]
  - Initial insomnia [Not Recovered/Not Resolved]
  - Insomnia [Not Recovered/Not Resolved]
  - Fatigue [Recovered/Resolved]
  - Dizziness [Recovered/Resolved]
